FAERS Safety Report 5504717-7 (Version None)
Quarter: 2007Q4

REPORT INFORMATION
  Report Type: 
  Country: None (occurrence: None)
  Receive Date: 20071031
  Receipt Date: 20071019
  Transmission Date: 20080405
  Serious: Yes (Hospitalization)
  Sender: FDA-Public Use
  Company Number: A-CH2006-13194

PATIENT
  Age: 27 Year
  Sex: Male
  Weight: 74 kg

DRUGS (1)
  1. ZAVESCA [Suspect]
     Indication: NIEMANN-PICK DISEASE
     Dosage: 200 MG, TID, ORAL
     Route: 048
     Dates: start: 20060501, end: 20070801

REACTIONS (4)
  - DRUG INEFFECTIVE [None]
  - MENTAL DISORDER [None]
  - THROMBOCYTOPENIA [None]
  - WEIGHT DECREASED [None]
